FAERS Safety Report 25824885 (Version 2)
Quarter: 2025Q3

REPORT INFORMATION
  Report Type: Spontaneous
  Country: EU (occurrence: EU)
  Receive Date: 20250919
  Receipt Date: 20250929
  Transmission Date: 20251020
  Serious: Yes (Congenital Anomaly, Other)
  Sender: DUCHESNAY
  Company Number: EU-MIMS-DUC-2025-SE-00516

PATIENT

DRUGS (2)
  1. DOXYLAMINE SUCCINATE\PYRIDOXINE HYDROCHLORIDE [Suspect]
     Active Substance: DOXYLAMINE SUCCINATE\PYRIDOXINE HYDROCHLORIDE
     Indication: Foetal exposure during pregnancy
     Dosage: 2 TABLETS PER DAY
     Route: 064
  2. ACETAMINOPHEN [Concomitant]
     Active Substance: ACETAMINOPHEN
     Indication: Headache
     Dosage: TWO 500 MG DOSES SUBSEQUENT DAYS
     Route: 064
     Dates: start: 2025, end: 2025

REACTIONS (1)
  - Congenital emphysema [Recovered/Resolved]
